FAERS Safety Report 8556531-6 (Version None)
Quarter: 2012Q3

REPORT INFORMATION
  Report Type: 
  Country: None (occurrence: None)
  Receive Date: 20120801
  Receipt Date: 20120724
  Transmission Date: 20120928
  Serious: Yes (Hospitalization)
  Sender: FDA-Public Use
  Company Number: US-BAYER-2012-050148

PATIENT
  Age: 41 Year
  Sex: Female
  Weight: 144 kg

DRUGS (12)
  1. LEXAPRO [Concomitant]
     Dosage: UNK
  2. SINGULAIR [Concomitant]
     Dosage: UNK
     Dates: start: 19760101
  3. IMITREX [Concomitant]
     Dosage: UNK
     Dates: start: 20100101
  4. NEURONTIN [Concomitant]
     Dosage: UNK
     Dates: start: 20060101
  5. ELMIRON [Concomitant]
     Dosage: 200 MG, BID
  6. ZANTAC [Concomitant]
  7. DROSPIRENONE AND ETHINYL ESTRADIOL [Suspect]
     Dosage: UNK
     Dates: start: 20081001
  8. PRILOSEC [Concomitant]
  9. FLOVENT [Concomitant]
     Dosage: UNK
     Dates: start: 19760101
  10. METOPROLOL TARTRATE [Concomitant]
     Dosage: UNK
     Dates: start: 20070101
  11. DIOVAN [Concomitant]
     Dosage: UNK
     Dates: start: 20060101
  12. ZOMIG [Concomitant]
     Dosage: UNK
     Dates: start: 20060101

REACTIONS (8)
  - DEEP VEIN THROMBOSIS [None]
  - ANXIETY [None]
  - PAIN [None]
  - INJURY [None]
  - PULMONARY EMBOLISM [None]
  - GENERAL PHYSICAL HEALTH DETERIORATION [None]
  - EMOTIONAL DISTRESS [None]
  - ANHEDONIA [None]
